FAERS Safety Report 5365276-5 (Version None)
Quarter: 2007Q2

REPORT INFORMATION
  Report Type: 
  Country: None (occurrence: None)
  Receive Date: 20070621
  Receipt Date: 20070615
  Transmission Date: 20071010
  Serious: Yes (Other)
  Sender: FDA-Public Use
  Company Number: ES-BAYER-200612995GDS

PATIENT
  Age: 53 Year
  Sex: Female
  Weight: 72 kg

DRUGS (17)
  1. SORAFENIB [Suspect]
     Indication: RENAL CELL CARCINOMA STAGE UNSPECIFIED
     Route: 048
     Dates: start: 20060719
  2. SORAFENIB [Suspect]
     Dosage: TOTAL DAILY DOSE: 800 MG
     Route: 048
     Dates: start: 20060705, end: 20060707
  3. SORAFENIB [Suspect]
     Dosage: TOTAL DAILY DOSE: 800 MG
     Route: 048
     Dates: start: 20070302, end: 20070523
  4. SORAFENIB [Suspect]
     Dosage: TOTAL DAILY DOSE: 800 MG
     Route: 048
     Dates: start: 20060613, end: 20060618
  5. MST [MORPHINE SULFATE] [Concomitant]
     Indication: BONE PAIN
     Route: 048
     Dates: start: 20060317
  6. PARIET [Concomitant]
     Indication: ABDOMINAL PAIN UPPER
     Route: 048
  7. CORENITEC [Concomitant]
     Indication: HYPERTENSION
     Route: 048
     Dates: start: 20060706, end: 20060719
  8. CORENITEC [Concomitant]
     Route: 048
     Dates: start: 20060707, end: 20060708
  9. FUROSEMIDE [Concomitant]
     Indication: HYPERTENSION
     Route: 042
     Dates: start: 20060707, end: 20060707
  10. CARDURAN NEO [Concomitant]
     Indication: HYPERTENSION
     Route: 048
     Dates: start: 20060708, end: 20060708
  11. CARDURAN NEO [Concomitant]
     Route: 048
     Dates: start: 20070326
  12. CARDURAN NEO [Concomitant]
     Route: 048
     Dates: start: 20060727, end: 20070325
  13. LEXATIN [Concomitant]
     Indication: ANXIETY
     Route: 048
     Dates: start: 20060718
  14. IBUPROFEN [Concomitant]
     Indication: PAIN
     Route: 048
     Dates: start: 20070227
  15. ALPRAZOLAM [Concomitant]
     Indication: DEPRESSION
     Route: 048
     Dates: start: 20061110
  16. VENLAFAXINE HCL [Concomitant]
     Indication: DEPRESSION
     Route: 048
     Dates: start: 20061110
  17. PARACETAMOL [Concomitant]
     Indication: PAIN
     Route: 048

REACTIONS (3)
  - HYPERTENSION [None]
  - RENAL CELL CARCINOMA STAGE UNSPECIFIED [None]
  - SYNCOPE [None]
